FAERS Safety Report 21771906 (Version 1)
Quarter: 2022Q4

REPORT INFORMATION
  Report Type: Spontaneous
  Country: NO (occurrence: None)
  Receive Date: 20221223
  Receipt Date: 20221223
  Transmission Date: 20230113
  Serious: Yes (Life-Threatening, Hospitalization, Other)
  Sender: FDA-Public Use
  Company Number: 2022A410814

PATIENT
  Age: 83 Year
  Sex: Male

DRUGS (4)
  1. DAPAGLIFLOZIN [Suspect]
     Active Substance: DAPAGLIFLOZIN
     Indication: Type 2 diabetes mellitus
     Route: 048
     Dates: end: 20221203
  2. ALLOPURINOL [Concomitant]
     Active Substance: ALLOPURINOL
     Indication: Gout
     Route: 065
  3. METFORMIN MEDICAL VALLEY [Concomitant]
     Indication: Type 2 diabetes mellitus
     Route: 065
  4. JANUVIA [Concomitant]
     Active Substance: SITAGLIPTIN PHOSPHATE
     Indication: Type 2 diabetes mellitus
     Route: 065

REACTIONS (5)
  - Hypernatraemia [Recovered/Resolved]
  - Compression fracture [Recovering/Resolving]
  - Confusional state [Recovering/Resolving]
  - Dehydration [Recovered/Resolved]
  - Ketoacidosis [Recovering/Resolving]
